FAERS Safety Report 9983930 (Version 2)
Quarter: 2014Q1

REPORT INFORMATION
  Report Type: Report from Study
  Country: US (occurrence: US)
  Receive Date: 20140307
  Receipt Date: 20140307
  Transmission Date: 20141002
  Serious: No
  Sender: FDA-Public Use
  Company Number: US-ABBVIE-13P-163-1169206-00

PATIENT
  Age: 43 Year
  Sex: Female

DRUGS (5)
  1. HUMIRA [Suspect]
     Indication: PSORIATIC ARTHROPATHY
     Dates: start: 201303, end: 20131021
  2. HUMIRA [Suspect]
  3. WELLBUTRIN [Concomitant]
     Indication: DEPRESSION
  4. ZYRTEC [Concomitant]
     Indication: HYPERSENSITIVITY
  5. NORCO [Concomitant]
     Indication: PAIN
     Dosage: 10 MG PER 325

REACTIONS (11)
  - Incorrect dose administered [Unknown]
  - Fatigue [Recovering/Resolving]
  - Tendonitis [Unknown]
  - Joint swelling [Unknown]
  - Nasal congestion [Unknown]
  - Headache [Not Recovered/Not Resolved]
  - Drug ineffective [Unknown]
  - Arthralgia [Not Recovered/Not Resolved]
  - Pain in extremity [Recovered/Resolved]
  - Injection site urticaria [Not Recovered/Not Resolved]
  - Injection site erythema [Not Recovered/Not Resolved]
